FAERS Safety Report 4726939-5 (Version None)
Quarter: 2005Q3

REPORT INFORMATION
  Report Type: 
  Country: None (occurrence: None)
  Receive Date: 20050726
  Receipt Date: 20050712
  Transmission Date: 20060218
  Serious: Yes (Death, Life-Threatening, Hospitalization, Other)
  Sender: FDA-Public Use
  Company Number: US-2005-008986

PATIENT
  Age: 55 Year
  Sex: Male
  Weight: 102.5 kg

DRUGS (27)
  1. ULTRAVIST 300 [Suspect]
     Indication: COMPUTERISED TOMOGRAM ABDOMEN
     Dosage: 100 ML, AT 3 ML/SEC 1 DOSE, INTRAVENOUS
     Route: 042
     Dates: start: 20050524, end: 20050524
  2. ULTRAVIST 300 [Suspect]
  3. CONTRAST MEDIA (CONTRAST MEDIA) [Suspect]
     Indication: COMPUTERISED TOMOGRAM ABDOMEN
     Dosage: 20 ML, 1 DOSE, ORAL
     Route: 048
     Dates: start: 20050524, end: 20050524
  4. BENZOTROPINE (BENZATROPINE MESILATE) [Concomitant]
  5. CLONIDINE [Concomitant]
  6. CYPROHEPTADINE HCL [Concomitant]
  7. DIATRIZOATE MEGLU66%/DIATRIZOATE [Concomitant]
  8. FELODIPINE [Concomitant]
  9. FLUCONAZOLE [Concomitant]
  10. GUAIFENESIN (GUAIFENESIN) [Concomitant]
  11. HALOPERIDOL [Concomitant]
  12. HALOPERIDOL DECANOATE (HALIPERIDOL DECANOATE) [Concomitant]
  13. IBUPROFEN [Concomitant]
  14. NICOTINE POLACRILEX (NICOTINE POLACRILEX) [Concomitant]
  15. OMEPRAZOLE [Concomitant]
  16. DILANTIN [Concomitant]
  17. POTASSIUM CHLORIDE [Concomitant]
  18. PROPRANOLOL [Concomitant]
  19. PSYLLIUM (PLANTAGO AFRA) POWDER [Concomitant]
  20. QUETIAPINE FUMARATE [Concomitant]
  21. SERTRALINE HCL [Concomitant]
  22. SIMETHICONE (SIMETICONE) [Concomitant]
  23. TOPAMAX [Concomitant]
  24. TRAZODONE HCL [Concomitant]
  25. VITAMIN B COMPLEX WITH C [Concomitant]
  26. VITAMIN E [Concomitant]
  27. CANDESARTAN (CANDESARTAN) [Concomitant]

REACTIONS (28)
  - ACTIVATED PARTIAL THROMBOPLASTIN TIME PROLONGED [None]
  - BLOOD CALCIUM ABNORMAL [None]
  - BLOOD GASES ABNORMAL [None]
  - BLOOD GLUCOSE INCREASED [None]
  - BLOOD POTASSIUM DECREASED [None]
  - BRAIN OEDEMA [None]
  - CARDIAC ARREST [None]
  - CONTRAST MEDIA REACTION [None]
  - CONVULSION [None]
  - EJECTION FRACTION DECREASED [None]
  - ELECTROCARDIOGRAM ST-T SEGMENT DEPRESSION [None]
  - ELECTROMECHANICAL DISSOCIATION [None]
  - ENCEPHALOPATHY [None]
  - FEELING HOT [None]
  - HYPOTENSION [None]
  - LOSS OF CONSCIOUSNESS [None]
  - MALAISE [None]
  - METABOLIC ACIDOSIS [None]
  - MITRAL VALVE INCOMPETENCE [None]
  - NAUSEA [None]
  - PLEURAL EFFUSION [None]
  - PROCEDURAL COMPLICATION [None]
  - PROTHROMBIN TIME PROLONGED [None]
  - PUPILLARY REFLEX IMPAIRED [None]
  - RETCHING [None]
  - SNEEZING [None]
  - TROPONIN T INCREASED [None]
  - VOMITING [None]
